FAERS Safety Report 14828411 (Version 1)
Quarter: 2018Q2

REPORT INFORMATION
  Report Type: Spontaneous
  Country: US (occurrence: US)
  Receive Date: 20180430
  Receipt Date: 20180430
  Transmission Date: 20180711
  Serious: No
  Sender: FDA-Public Use
  Company Number: US-SUNOVION-2018SUN001536

PATIENT
  Sex: Female

DRUGS (11)
  1. VITAMIN D [Concomitant]
     Active Substance: CHOLECALCIFEROL
  2. PREDNISONE. [Concomitant]
     Active Substance: PREDNISONE
  3. OCUVITE [Concomitant]
     Active Substance: VITAMINS
  4. LONHALA MAGNAIR [Suspect]
     Active Substance: GLYCOPYRROLATE
     Indication: CHRONIC OBSTRUCTIVE PULMONARY DISEASE
     Dosage: 25MCG/1ML, BID
     Route: 055
     Dates: start: 201803
  5. BUDESONIDE. [Concomitant]
     Active Substance: BUDESONIDE
  6. MAGNESIUM [Concomitant]
     Active Substance: MAGNESIUM
  7. GABAPENTIN. [Concomitant]
     Active Substance: GABAPENTIN
  8. BROVANA [Concomitant]
     Active Substance: ARFORMOTEROL TARTRATE
  9. ALBUTEROL SULFATE. [Concomitant]
     Active Substance: ALBUTEROL SULFATE
  10. POTASSIUM CHLORIDE. [Concomitant]
     Active Substance: POTASSIUM CHLORIDE
  11. THEOPHYLLINE [Concomitant]
     Active Substance: THEOPHYLLINE ANHYDROUS

REACTIONS (3)
  - Throat irritation [Not Recovered/Not Resolved]
  - Fatigue [Not Recovered/Not Resolved]
  - Cough [Not Recovered/Not Resolved]
